FAERS Safety Report 6166488-3 (Version None)
Quarter: 2009Q2

REPORT INFORMATION
  Report Type: 
  Country: None (occurrence: None)
  Receive Date: 20090424
  Receipt Date: 20090415
  Transmission Date: 20091009
  Serious: Yes (Hospitalization)
  Sender: FDA-Public Use
  Company Number: NL-ASTRAZENECA-2009AC01101

PATIENT
  Age: 7501 Day
  Sex: Female

DRUGS (4)
  1. SEROQUEL XR [Suspect]
     Dates: end: 20090327
  2. BOSENTAN [Concomitant]
  3. REVATIO [Concomitant]
  4. ACECOUMARON [Concomitant]

REACTIONS (1)
  - SUPRAVENTRICULAR TACHYCARDIA [None]
